FAERS Safety Report 25304345 (Version 1)
Quarter: 2025Q2

REPORT INFORMATION
  Report Type: Spontaneous
  Country: US (occurrence: US)
  Receive Date: 20250513
  Receipt Date: 20250513
  Transmission Date: 20250717
  Serious: No
  Sender: PADAGIS
  Company Number: US-PADAGIS-2025PAD00536

PATIENT

DRUGS (1)
  1. IMIQUIMOD [Suspect]
     Active Substance: IMIQUIMOD
     Indication: Papilloma excision
     Route: 065

REACTIONS (5)
  - Application site swelling [Unknown]
  - Application site inflammation [Unknown]
  - Pain [Unknown]
  - Product use issue [Unknown]
  - Product use in unapproved indication [Unknown]
